FAERS Safety Report 7948593 (Version 3)
Quarter: 2018Q4

REPORT INFORMATION
  Report Type: Spontaneous
  Country: GB (occurrence: GB)
  Receive Date: 20110517
  Receipt Date: 20181218
  Transmission Date: 20190205
  Serious: Yes (Hospitalization)
  Sender: FDA-Public Use
  Company Number: GB-BAYER-2011-021109

PATIENT
  Age: 68 Year
  Sex: Male

DRUGS (9)
  1. IRBESARTAN. [Concomitant]
     Active Substance: IRBESARTAN
  2. BROMOCRIPTINE [Concomitant]
     Active Substance: BROMOCRIPTINE
  3. LEVOTHYROXINE. [Concomitant]
     Active Substance: LEVOTHYROXINE
  4. OMEPRAZOLE. [Suspect]
     Active Substance: OMEPRAZOLE
     Indication: PROPHYLAXIS
     Dosage: 20 MG, QD
     Dates: start: 20110207, end: 20110217
  5. QUININE SULPHATE [Suspect]
     Active Substance: QUININE SULFATE
     Indication: MUSCLE SPASMS
     Dosage: 200 MG, QD
     Dates: start: 20110106, end: 20110217
  6. ASPIRIN [ACETYLSALICYLIC ACID] [Concomitant]
     Active Substance: ASPIRIN
  7. NAPROXEN SODIUM ({= 220 MG) [Suspect]
     Active Substance: NAPROXEN SODIUM
     Dosage: 250 MG, BID
     Route: 048
     Dates: start: 20110207, end: 20110217
  8. AMLODIPINE [Concomitant]
     Active Substance: AMLODIPINE BESYLATE
  9. SIMVASTATIN. [Concomitant]
     Active Substance: SIMVASTATIN

REACTIONS (8)
  - Mouth ulceration [Recovering/Resolving]
  - Vomiting [None]
  - Purpura [Recovering/Resolving]
  - Conjunctivitis [Recovering/Resolving]
  - Diarrhoea [None]
  - Stevens-Johnson syndrome [Recovering/Resolving]
  - Confusional state [None]
  - Rash erythematous [Recovering/Resolving]

NARRATIVE: CASE EVENT DATE: 20110211
